FAERS Safety Report 23991904 (Version 1)
Quarter: 2024Q2

REPORT INFORMATION
  Report Type: Report from Study
  Country: US (occurrence: US)
  Receive Date: 20240620
  Receipt Date: 20240620
  Transmission Date: 20240715
  Serious: Yes (Other)
  Sender: FDA-Public Use
  Company Number: US-ABBVIE-5676649

PATIENT
  Age: 63 Year
  Sex: Female
  Weight: 68.49 kg

DRUGS (21)
  1. SKYRIZI [Suspect]
     Active Substance: RISANKIZUMAB-RZAA
     Indication: Psoriasis
     Dosage: LAST ADMIN DATE 2023
     Route: 058
     Dates: start: 20230113
  2. SKYRIZI [Suspect]
     Active Substance: RISANKIZUMAB-RZAA
     Route: 058
     Dates: start: 202312, end: 202312
  3. SKYRIZI [Suspect]
     Active Substance: RISANKIZUMAB-RZAA
     Route: 058
     Dates: start: 20221207
  4. SKYRIZI [Suspect]
     Active Substance: RISANKIZUMAB-RZAA
     Route: 058
  5. VTAMA [Concomitant]
     Active Substance: TAPINAROF
     Indication: Product used for unknown indication
     Dosage: 1% TOPICAL CREAM?1 APP, TOP, DAILY, 60 GM, 5 REFILLS
  6. MAGNESIUM CHLORIDE [Concomitant]
     Active Substance: MAGNESIUM CHLORIDE
     Indication: Product used for unknown indication
     Dosage: ORAL, DAILY, PRN, 0 REFILLS
  7. BACILLUS COAGULANS;INULIN [Concomitant]
     Indication: Product used for unknown indication
     Dosage: (PROBIOTIC FORMULA (BACILLUS COAGULANS) ORAL CAPSULE)?1 CAP(S), ORAL, DAILY,  30 CAPSULES, 0 REFILLS
     Route: 048
  8. METAMUCIL [Concomitant]
     Active Substance: PLANTAGO SEED
     Indication: Product used for unknown indication
     Dosage: 400 MG ORAL CAPSULE?2,000 MG = 5 CAPSULES, ORAL, QID, PRN AS NEEDED FOR CONSTIPATION, WITH AT LEA...
     Route: 048
  9. TEMOVATE [Concomitant]
     Active Substance: CLOBETASOL PROPIONATE
     Indication: Product used for unknown indication
     Dosage: 0.05%?APPLY AS DIRECTED TOPICALLY ONCE DAILY AS NEEDED FOR TWO WEEKS, 4 90 GM, 0 REFILLS
     Route: 061
  10. IBUPROFEN [Concomitant]
     Active Substance: IBUPROFEN
     Indication: Product used for unknown indication
     Dosage: 200 MG OR 400MG EVERY 4-6 HOURS AS NEEDED, 0 REFILLS
  11. VITAMIN D3 [Concomitant]
     Active Substance: CHOLECALCIFEROL
     Indication: Product used for unknown indication
     Dosage: DAILY, 0 REFILLS
  12. CHONDROITIN SULFATE (BOVINE)\GLUCOSAMINE HYDROCHLORIDE [Concomitant]
     Active Substance: CHONDROITIN SULFATE (BOVINE)\GLUCOSAMINE HYDROCHLORIDE
     Indication: Product used for unknown indication
     Dosage: CAPSULE 500 MG-400 MG?0 REFILLS
  13. OMEPRAZOLE [Concomitant]
     Active Substance: DONEPEZIL HYDROCHLORIDE\OMEPRAZOLE\OMEPRAZOLE MAGNESIUM
     Indication: Product used for unknown indication
     Dosage: 20 MG, ORAL, DAILY, 0 REFILS
  14. CLONAZEPAM [Concomitant]
     Active Substance: CLONAZEPAM
     Indication: Product used for unknown indication
     Dosage: 0.5 MG ORAL TABLET, 1/2 OR 1 TABLET ONCE DAILY AT BEDTIME AS NEEDED?LEAVE AT 30- FILLS INFREQUENT...
     Route: 048
  15. NORTRIPTYLINE [Concomitant]
     Active Substance: NORTRIPTYLINE
     Indication: Product used for unknown indication
     Dosage: 10 MG= 1 CAPSULE DAILY (AT BEDTIME), 90 CAPSULES, 3 REFILLS
     Route: 048
  16. LOSARTAN [Concomitant]
     Active Substance: LOSARTAN
     Indication: Product used for unknown indication
     Dosage: 50 MG = 1 TABLET, ORAL, DAILY,  90 TABLET, 3 REFILLS
     Route: 048
  17. AMLODIPINE [Concomitant]
     Active Substance: AMLODIPINE BESYLATE
     Indication: Product used for unknown indication
     Dosage: 2.5 MG = 1 TABLET ORAL, DAILY, 90 TABLETS, 3 REFILLS
     Route: 048
  18. Hepaguard [Concomitant]
     Indication: Product used for unknown indication
  19. BETAMETHASONE [Concomitant]
     Active Substance: BETAMETHASONE\BETAMETHASONE DIPROPIONATE
     Indication: Product used for unknown indication
     Dosage: APPLY TO AA BID AS NEEDED, 20 ML, 3 REFILLS?LOT 0.05%
     Route: 061
  20. CLOBETASOL [Concomitant]
     Active Substance: CLOBETASOL
     Indication: Product used for unknown indication
     Dosage: APPLY TO BID FOR 2 WEEKS, THEN, TAPER TO PRN,  60 GRAM, 2 REFILLS?OINTMENT 0.05%)
     Route: 061
  21. TYLENOL [Concomitant]
     Active Substance: ACETAMINOPHEN
     Indication: Product used for unknown indication
     Dosage: 500 MG, ORAL, 2 TABLETS DAILY, 0 REFILLS
     Route: 048

REACTIONS (10)
  - Hepatic enzyme increased [Recovering/Resolving]
  - Abdominal pain upper [Unknown]
  - Serum ferritin increased [Unknown]
  - Blood cholesterol increased [Unknown]
  - Blood triglycerides increased [Unknown]
  - Hepatic enzyme increased [Recovered/Resolved]
  - Blood alkaline phosphatase increased [Unknown]
  - Gamma-glutamyltransferase increased [Unknown]
  - Liver disorder [Unknown]
  - Alanine aminotransferase increased [Unknown]

NARRATIVE: CASE EVENT DATE: 20240213
